FAERS Safety Report 5513389-7 (Version None)
Quarter: 2007Q4

REPORT INFORMATION
  Report Type: 
  Country: None (occurrence: None)
  Receive Date: 20071112
  Receipt Date: 20070702
  Transmission Date: 20080405
  Serious: Yes (Death, Other)
  Sender: FDA-Public Use
  Company Number: US-PFIZER INC-2006129290

PATIENT
  Sex: Male
  Weight: 87.1 kg

DRUGS (7)
  1. CELEBREX [Suspect]
     Indication: ARTHRITIS
     Route: 048
     Dates: start: 20011219, end: 20020307
  2. BEXTRA [Suspect]
     Indication: ARTHRITIS
     Route: 048
     Dates: start: 20020307, end: 20020818
  3. VIOXX [Suspect]
     Indication: ARTHRITIS
     Route: 048
     Dates: start: 19991001, end: 20010102
  4. ACETYLSALICYLIC ACID SRT [Concomitant]
     Dates: start: 19960101, end: 20020925
  5. ACCUPRIL [Concomitant]
     Indication: CARDIAC DISORDER
     Dates: start: 20010122, end: 20020925
  6. COVERA-HS [Concomitant]
     Indication: HYPERTENSION
     Dates: start: 20011121, end: 20020925
  7. LIPITOR [Concomitant]
     Indication: BLOOD CHOLESTEROL INCREASED
     Dates: start: 19990111, end: 20020925

REACTIONS (2)
  - ARTERIOSCLEROSIS CORONARY ARTERY [None]
  - CARDIAC ARREST [None]
